FAERS Safety Report 8483308-2 (Version None)
Quarter: 2012Q3

REPORT INFORMATION
  Report Type: 
  Country: None (occurrence: None)
  Receive Date: 20120702
  Receipt Date: 20120620
  Transmission Date: 20120928
  Serious: Yes (Hospitalization)
  Sender: FDA-Public Use
  Company Number: FR-CELGENEUS-056-21880-12063003

PATIENT
  Sex: Male

DRUGS (3)
  1. BORTEZOMIB [Suspect]
     Route: 065
     Dates: start: 20120529, end: 20120608
  2. DEXAMETHASONE [Suspect]
     Route: 065
     Dates: start: 20120529, end: 20120609
  3. REVLIMID [Suspect]
     Dosage: 25 MILLIGRAM
     Route: 048
     Dates: start: 20120529, end: 20120611

REACTIONS (1)
  - PROSTATITIS [None]
